FAERS Safety Report 7070303-3 (Version None)
Quarter: 2010Q4

REPORT INFORMATION
  Report Type: 
  Country: None (occurrence: None)
  Receive Date: 20101028
  Receipt Date: 20101011
  Transmission Date: 20110411
  Serious: No
  Sender: FDA-Public Use
  Company Number: US-WYE-H18123210

PATIENT
  Age: 64 Year
  Sex: Female
  Weight: 81.72 kg

DRUGS (4)
  1. ADVIL COLD AND SINUS [Suspect]
     Indication: PARANASAL SINUS DISCOMFORT
     Dosage: ONE TABLET EVERY FOUR TO SIX HOURS
     Route: 048
     Dates: start: 20101004, end: 20101008
  2. FISH OIL, HYDROGENATED [Concomitant]
  3. CHOLESTEROL- AND TRIGLYCERIDE REDUCERS [Concomitant]
  4. ACETYLSALICYLIC ACID [Concomitant]

REACTIONS (3)
  - COUGH [None]
  - DIARRHOEA [None]
  - DRUG INEFFECTIVE [None]
